FAERS Safety Report 8823486 (Version 1)
Quarter: 2012Q4

REPORT INFORMATION
  Report Type: 
  Country: AR (occurrence: AR)
  Receive Date: 20121003
  Receipt Date: 20121003
  Transmission Date: 20130627
  Serious: Yes (Other)
  Sender: FDA-Public Use
  Company Number: AR-ABBOTT-12P-007-0989512-00

PATIENT

DRUGS (2)
  1. SEVOFLURANE [Suspect]
     Indication: ANAESTHESIA
  2. ASPIRIN [Suspect]
     Indication: ANAESTHESIA

REACTIONS (3)
  - Cerebrovascular accident [Unknown]
  - Arrhythmia [Unknown]
  - Drug interaction [None]
